FAERS Safety Report 6494491-2 (Version None)
Quarter: 2009Q4

REPORT INFORMATION
  Report Type: 
  Country: None (occurrence: None)
  Receive Date: 20091214
  Receipt Date: 20090305
  Transmission Date: 20100525
  Serious: Yes (Other)
  Sender: FDA-Public Use
  Company Number: US-BRISTOL-MYERS SQUIBB COMPANY-14518963

PATIENT
  Sex: Female

DRUGS (3)
  1. EMSAM [Suspect]
     Indication: DEPRESSION
  2. ABILIFY [Suspect]
     Indication: DEPRESSION
  3. SEROQUEL [Suspect]
     Indication: DEPRESSION

REACTIONS (1)
  - AKATHISIA [None]
